FAERS Safety Report 24911770 (Version 1)
Quarter: 2025Q1

REPORT INFORMATION
  Report Type: Spontaneous
  Country: CN (occurrence: CN)
  Receive Date: 20250131
  Receipt Date: 20250131
  Transmission Date: 20250408
  Serious: Yes (Other)
  Sender: RANBAXY
  Company Number: CN-SUN PHARMACEUTICAL INDUSTRIES LTD-2025R1-491444

PATIENT
  Age: 34 Year
  Sex: Female

DRUGS (6)
  1. ASPIRIN [Suspect]
     Active Substance: ASPIRIN
     Indication: Connective tissue disorder
     Route: 065
  2. ENOXAPARIN SODIUM [Suspect]
     Active Substance: ENOXAPARIN SODIUM
     Indication: Connective tissue disorder
     Route: 065
  3. HYDROXYCHLOROQUINE [Suspect]
     Active Substance: HYDROXYCHLOROQUINE
     Indication: Connective tissue disorder
     Route: 065
  4. CYCLOSPORINE [Suspect]
     Active Substance: CYCLOSPORINE
     Indication: Product used for unknown indication
     Dosage: 100 MILLIGRAM, BID
     Route: 048
  5. FONDAPARINUX [Suspect]
     Active Substance: FONDAPARINUX
     Indication: Anticoagulant therapy
     Route: 065
  6. IRON [Suspect]
     Active Substance: IRON
     Indication: Anaemia
     Route: 065

REACTIONS (8)
  - Exposure during pregnancy [Unknown]
  - Haemolytic anaemia [Unknown]
  - Premature delivery [Unknown]
  - Oligohydramnios [Unknown]
  - Drug ineffective [Unknown]
  - Postpartum haemorrhage [Unknown]
  - Haemoglobin decreased [Unknown]
  - COVID-19 [Unknown]
